FAERS Safety Report 12699198 (Version 1)
Quarter: 2016Q3

REPORT INFORMATION
  Report Type: Report from Study
  Country: US (occurrence: US)
  Receive Date: 20160830
  Receipt Date: 20160830
  Transmission Date: 20161109
  Serious: Yes (Other)
  Sender: FDA-Public Use
  Company Number: US-GILEAD-2016-0231024

PATIENT
  Age: 80 Year
  Sex: Female

DRUGS (5)
  1. AMBRISENTAN [Suspect]
     Active Substance: AMBRISENTAN
     Indication: PULMONARY HYPERTENSION
     Dosage: 10 MG, QD
     Route: 065
     Dates: start: 20150903
  2. NIFEDIPINE. [Concomitant]
     Active Substance: NIFEDIPINE
  3. TACROLIMUS. [Concomitant]
     Active Substance: TACROLIMUS
  4. ADCIRCA [Suspect]
     Active Substance: TADALAFIL
     Indication: PRODUCT USED FOR UNKNOWN INDICATION
     Dosage: UNK
     Route: 065
  5. MYCOPHENOLATE [Concomitant]
     Active Substance: MYCOPHENOLIC ACID

REACTIONS (5)
  - Fatigue [Not Recovered/Not Resolved]
  - Renal transplant [Unknown]
  - Drug ineffective [Not Recovered/Not Resolved]
  - Dyspnoea [Not Recovered/Not Resolved]
  - Speech disorder [Not Recovered/Not Resolved]

NARRATIVE: CASE EVENT DATE: 20160201
